FAERS Safety Report 8620197-7 (Version None)
Quarter: 2012Q3

REPORT INFORMATION
  Report Type: 
  Country: None (occurrence: None)
  Receive Date: 20120824
  Receipt Date: 20120822
  Transmission Date: 20120928
  Serious: Yes (Death, Other)
  Sender: FDA-Public Use
  Company Number: PHHY2012US072577

PATIENT
  Age: 59 Year
  Sex: Male

DRUGS (2)
  1. NSAID'S [Concomitant]
  2. TRIAMCINOLONE [Suspect]
     Dosage: 1 ML, UNK
     Route: 014

REACTIONS (2)
  - INJECTION SITE DISCOLOURATION [None]
  - DEATH [None]
